FAERS Safety Report 6822774-2 (Version None)
Quarter: 2010Q3

REPORT INFORMATION
  Report Type: 
  Country: None (occurrence: None)
  Receive Date: 20100708
  Receipt Date: 20100705
  Transmission Date: 20110219
  Serious: Yes (Death, Hospitalization)
  Sender: FDA-Public Use
  Company Number: JP-SANOFI-AVENTIS-2010SA038877

PATIENT
  Age: 75 Year
  Sex: Male

DRUGS (14)
  1. OXALIPLATIN [Suspect]
     Indication: COLON CANCER METASTATIC
     Route: 041
     Dates: start: 20090728, end: 20090728
  2. OXALIPLATIN [Suspect]
     Route: 041
  3. AVASTIN [Suspect]
     Indication: COLON CANCER METASTATIC
     Route: 041
     Dates: start: 20090727, end: 20090727
  4. AVASTIN [Suspect]
     Route: 041
  5. IRINOTECAN HCL [Suspect]
     Indication: COLON CANCER METASTATIC
     Route: 041
     Dates: start: 20100419, end: 20100419
  6. FLUOROURACIL [Suspect]
     Indication: COLON CANCER METASTATIC
     Route: 041
     Dates: start: 20090727, end: 20090728
  7. FLUOROURACIL [Suspect]
     Route: 041
     Dates: start: 20100418, end: 20100419
  8. CALCIUM LEVOFOLINATE [Suspect]
     Indication: COLON CANCER METASTATIC
     Route: 041
     Dates: start: 20090728, end: 20090728
  9. CALCIUM LEVOFOLINATE [Suspect]
     Route: 041
     Dates: start: 20100419, end: 20100419
  10. ASPIRIN [Concomitant]
     Dates: end: 20100510
  11. DEXAMETHASONE [Concomitant]
     Dates: start: 20090728, end: 20100419
  12. INDISETRON [Concomitant]
     Dates: start: 20090728, end: 20100419
  13. LOXONIN [Concomitant]
     Dates: start: 20091120
  14. GASTER D [Concomitant]
     Dates: start: 20090908

REACTIONS (3)
  - GASTROINTESTINAL PERFORATION [None]
  - INTESTINAL OBSTRUCTION [None]
  - PYREXIA [None]
